FAERS Safety Report 20074035 (Version 3)
Quarter: 2022Q2

REPORT INFORMATION
  Report Type: Spontaneous
  Country: US (occurrence: US)
  Receive Date: 20211116
  Receipt Date: 20220501
  Transmission Date: 20220721
  Serious: No
  Sender: FDA-Public Use
  Company Number: US-NOVARTISTESTPH-NVSC2021US261366

PATIENT
  Sex: Male

DRUGS (1)
  1. OMNITROPE [Suspect]
     Active Substance: SOMATROPIN
     Indication: Product used for unknown indication
     Dosage: 2.7 6X WEEK AT PM
     Route: 065

REACTIONS (5)
  - Device issue [Unknown]
  - Incorrect dose administered by device [Unknown]
  - Product odour abnormal [Unknown]
  - Device leakage [Unknown]
  - Device difficult to use [Unknown]
